FAERS Safety Report 11135002 (Version 1)
Quarter: 2015Q2

REPORT INFORMATION
  Report Type: Spontaneous
  Country: BR (occurrence: BR)
  Receive Date: 20150525
  Receipt Date: 20150525
  Transmission Date: 20150821
  Serious: Yes (Other)
  Sender: FDA-Public Use
  Company Number: BR-PFIZER INC-2015168398

PATIENT
  Age: 55 Year
  Sex: Male
  Weight: 68 kg

DRUGS (9)
  1. GLIFAGE XR [Concomitant]
     Active Substance: METFORMIN HYDROCHLORIDE
     Indication: DIABETES PROPHYLAXIS
     Dosage: 2 TABLETS, DAILY
     Dates: start: 2014
  2. ATLANSIL [Concomitant]
     Indication: ARRHYTHMIA
     Dosage: 1 TABLET OF 200 MG, DAILY
     Dates: start: 2011
  3. NAPRIX [Concomitant]
     Active Substance: RAMIPRIL
     Indication: BLOOD DISORDER
     Dosage: 2 TABLETS OF 10 MG, DAILY
     Dates: start: 1999
  4. SECOTEX [Concomitant]
     Active Substance: TAMSULOSIN
     Indication: PROSTATIC DISORDER
     Dosage: 1 TABLET, DAILY
     Dates: start: 1997
  5. LIPITOR [Suspect]
     Active Substance: ATORVASTATIN CALCIUM
     Indication: CARDIAC DISORDER
     Dosage: 1 TABLET OF 20 MG, DAILY
     Route: 048
     Dates: start: 2005
  6. PANTOPRAZOLE [Concomitant]
     Active Substance: PANTOPRAZOLE SODIUM
     Indication: ABDOMINAL DISCOMFORT
     Dosage: 1 TABLET, DAILY
     Dates: start: 1996
  7. EXODUS [Concomitant]
     Active Substance: ESCITALOPRAM OXALATE
     Indication: DEPRESSION
     Dosage: 1 TABLET OF 10 MG, DAILY
     Dates: start: 2008
  8. MONOCORDIL [Concomitant]
     Active Substance: ISOSORBIDE MONONITRATE
     Indication: CORONARY ARTERY DISEASE
     Dosage: 2 TABLETS OF 20 MG, DAILY
     Dates: start: 1999
  9. SOMALGIN CARDIO [Concomitant]
     Active Substance: ASPIRIN\DIHYDROXYALUMINUM AMINOACETATE ANHYDROUS\MAGNESIUM CARBONATE
     Indication: CARDIAC DISORDER
     Dosage: 1 TABLET, DAILY
     Dates: start: 1999

REACTIONS (2)
  - Aneurysm [Unknown]
  - Arrhythmia [Unknown]

NARRATIVE: CASE EVENT DATE: 20050826
